FAERS Safety Report 4521650-8 (Version None)
Quarter: 2004Q4

REPORT INFORMATION
  Report Type: 
  Country: None (occurrence: None)
  Receive Date: 20041206
  Receipt Date: 20041129
  Transmission Date: 20050328
  Serious: Yes (Death)
  Sender: FDA-Public Use
  Company Number: 200410737BNE

PATIENT
  Age: 76 Year
  Sex: Male

DRUGS (8)
  1. ASPIRIN [Suspect]
  2. CLOPIDOGREL [Suspect]
     Indication: ANGINA PECTORIS
     Dosage: 75 MG, TOTAL DIALY, ORAL
     Route: 048
  3. INSULIN [Concomitant]
  4. NICORANDIL [Concomitant]
  5. RAMIPRIL [Concomitant]
  6. FRUSEMIDE [Concomitant]
  7. SIMVASTATIN [Concomitant]
  8. DILTIAZEM [Concomitant]

REACTIONS (1)
  - POST PROCEDURAL HAEMORRHAGE [None]
